FAERS Safety Report 9712656 (Version 1)
Quarter: 2013Q4

REPORT INFORMATION
  Report Type: Spontaneous
  Country: US (occurrence: US)
  Receive Date: 20131126
  Receipt Date: 20131126
  Transmission Date: 20140711
  Serious: No
  Sender: FDA-Public Use
  Company Number: US-TEVA-446707USA

PATIENT
  Age: 38 Year
  Sex: Female

DRUGS (1)
  1. COPAXONE [Suspect]
     Dates: end: 2013

REACTIONS (6)
  - Injection site reaction [Unknown]
  - Injection site urticaria [Unknown]
  - Injection site urticaria [Unknown]
  - Injection site pain [Unknown]
  - Feeling abnormal [Unknown]
  - Incorrect route of drug administration [Unknown]
